FAERS Safety Report 25638062 (Version 2)
Quarter: 2025Q3

REPORT INFORMATION
  Report Type: Spontaneous
  Country: TW (occurrence: TW)
  Receive Date: 20250804
  Receipt Date: 20250819
  Transmission Date: 20251021
  Serious: Yes (Hospitalization, Other)
  Sender: MYLAN
  Company Number: TW-MYLANLABS-2025M1064126

PATIENT
  Age: 66 Year
  Sex: Female
  Weight: 40.3 kg

DRUGS (24)
  1. LIPITOR [Suspect]
     Active Substance: ATORVASTATIN CALCIUM
     Indication: Hyperlipidaemia
     Dosage: 10 MILLIGRAM, QD
     Dates: end: 20250628
  2. LIPITOR [Suspect]
     Active Substance: ATORVASTATIN CALCIUM
     Dosage: 10 MILLIGRAM, QD
     Route: 048
     Dates: end: 20250628
  3. LIPITOR [Suspect]
     Active Substance: ATORVASTATIN CALCIUM
     Dosage: 10 MILLIGRAM, QD
     Route: 048
     Dates: end: 20250628
  4. LIPITOR [Suspect]
     Active Substance: ATORVASTATIN CALCIUM
     Dosage: 10 MILLIGRAM, QD
     Dates: end: 20250628
  5. NORVASC [Suspect]
     Active Substance: AMLODIPINE BESYLATE
     Indication: Hypertension
     Dosage: 5 MILLIGRAM, QD
     Dates: end: 20250628
  6. NORVASC [Suspect]
     Active Substance: AMLODIPINE BESYLATE
     Dosage: 5 MILLIGRAM, QD
     Route: 048
     Dates: end: 20250628
  7. NORVASC [Suspect]
     Active Substance: AMLODIPINE BESYLATE
     Dosage: 5 MILLIGRAM, QD
     Route: 048
     Dates: end: 20250628
  8. NORVASC [Suspect]
     Active Substance: AMLODIPINE BESYLATE
     Dosage: 5 MILLIGRAM, QD
     Dates: end: 20250628
  9. PAXLOVID [Suspect]
     Active Substance: NIRMATRELVIR\RITONAVIR
     Indication: COVID-19
     Dosage: UNK UNK, BID
     Dates: start: 20250628, end: 20250628
  10. PAXLOVID [Suspect]
     Active Substance: NIRMATRELVIR\RITONAVIR
     Dosage: UNK UNK, BID
     Route: 048
     Dates: start: 20250628, end: 20250628
  11. PAXLOVID [Suspect]
     Active Substance: NIRMATRELVIR\RITONAVIR
     Dosage: UNK UNK, BID
     Route: 048
     Dates: start: 20250628, end: 20250628
  12. PAXLOVID [Suspect]
     Active Substance: NIRMATRELVIR\RITONAVIR
     Dosage: UNK UNK, BID
     Dates: start: 20250628, end: 20250628
  13. Recough [Concomitant]
     Indication: Cough
     Dosage: 20 MILLIGRAM, TID
     Dates: start: 20250628, end: 20250628
  14. Recough [Concomitant]
     Dosage: 20 MILLIGRAM, TID
     Route: 048
     Dates: start: 20250628, end: 20250628
  15. Recough [Concomitant]
     Dosage: 20 MILLIGRAM, TID
     Route: 048
     Dates: start: 20250628, end: 20250628
  16. Recough [Concomitant]
     Dosage: 20 MILLIGRAM, TID
     Dates: start: 20250628, end: 20250628
  17. Azunen [Concomitant]
     Indication: Abdominal discomfort
     Dosage: 2 MILLIGRAM, TID
     Dates: start: 20250628, end: 20250628
  18. Azunen [Concomitant]
     Dosage: 2 MILLIGRAM, TID
     Route: 048
     Dates: start: 20250628, end: 20250628
  19. Azunen [Concomitant]
     Dosage: 2 MILLIGRAM, TID
     Route: 048
     Dates: start: 20250628, end: 20250628
  20. Azunen [Concomitant]
     Dosage: 2 MILLIGRAM, TID
     Dates: start: 20250628, end: 20250628
  21. DICLOFENAC [Concomitant]
     Active Substance: DICLOFENAC
     Indication: Pyrexia
     Dosage: 50 MILLIGRAM, TID
     Dates: start: 20250628, end: 20250628
  22. DICLOFENAC [Concomitant]
     Active Substance: DICLOFENAC
     Dosage: 50 MILLIGRAM, TID
     Route: 048
     Dates: start: 20250628, end: 20250628
  23. DICLOFENAC [Concomitant]
     Active Substance: DICLOFENAC
     Dosage: 50 MILLIGRAM, TID
     Route: 048
     Dates: start: 20250628, end: 20250628
  24. DICLOFENAC [Concomitant]
     Active Substance: DICLOFENAC
     Dosage: 50 MILLIGRAM, TID
     Dates: start: 20250628, end: 20250628

REACTIONS (8)
  - Acute myocardial infarction [Recovered/Resolved]
  - Sinus node dysfunction [Recovered/Resolved]
  - Syncope [Recovered/Resolved]
  - COVID-19 [Recovered/Resolved]
  - Skin laceration [Recovered/Resolved]
  - Bradycardia [Unknown]
  - Fall [Recovered/Resolved]
  - Dizziness [Recovered/Resolved]

NARRATIVE: CASE EVENT DATE: 20250628
